FAERS Safety Report 23617415 (Version 1)
Quarter: 2024Q1

REPORT INFORMATION
  Report Type: Spontaneous
  Country: US (occurrence: None)
  Receive Date: 20240311
  Receipt Date: 20240311
  Transmission Date: 20240410
  Serious: Yes (Hospitalization)
  Sender: FDA-Public Use
  Company Number: None

PATIENT
  Sex: Female

DRUGS (4)
  1. AMBRISENTAN [Suspect]
     Active Substance: AMBRISENTAN
     Indication: Pulmonary arterial hypertension
     Dosage: FREQUENCY : DAILY;?
     Route: 048
     Dates: start: 201908
  2. MYCOPHENOLATE VIOFETIL [Concomitant]
  3. SILDENAFIL CITRATE [Concomitant]
  4. REMODULIN MDV [Concomitant]

REACTIONS (1)
  - Oedema peripheral [None]
